FAERS Safety Report 8115685-6 (Version None)
Quarter: 2012Q1

REPORT INFORMATION
  Report Type: 
  Country: None (occurrence: None)
  Receive Date: 20120206
  Receipt Date: 20120203
  Transmission Date: 20120608
  Serious: Yes (Death, Hospitalization)
  Sender: FDA-Public Use
  Company Number: GR-B.I. PHARMACEUTICALS,INC./RIDGEFIELD-2012-EU-00740GB

PATIENT
  Age: 75 Year
  Sex: Male

DRUGS (4)
  1. UNSPECIFIED CA CHANNEL BLOCKER [Concomitant]
     Indication: HYPERTENSION
  2. PRADAXA [Suspect]
     Indication: ATRIAL FIBRILLATION
     Dosage: 220 MG
     Route: 048
     Dates: start: 20111001, end: 20111201
  3. UNSPECIFIED SARTAN [Concomitant]
     Indication: HYPERTENSION
  4. UNSPECIFIED DIURETIC [Concomitant]
     Indication: HYPERTENSION

REACTIONS (8)
  - SEPSIS [None]
  - COUGH [None]
  - MULTI-ORGAN FAILURE [None]
  - RESPIRATORY TRACT INFECTION [None]
  - DYSPNOEA [None]
  - PYREXIA [None]
  - NOSOCOMIAL INFECTION [None]
  - PULMONARY EMBOLISM [None]
